FAERS Safety Report 7010456 (Version 2)
Quarter: 2014Q2

REPORT INFORMATION
  Report Type: Spontaneous
  Country: US (occurrence: None)
  Receive Date: 20090526
  Receipt Date: 20140630
  Transmission Date: 20141212
  Serious: Yes (Other)
  Sender: FDA-Public Use
  Company Number: 2009S1004072

PATIENT
  Age: 69 Year
  Sex: Female
  Weight: 85.28 kg

DRUGS (9)
  1. FLEET PHOSPHO-SODA ORAL SALINE LAXATIVE, GINGER-LEMON FLAVOR (45 MILLILITRE(S), ORAL SOLUTION) [Suspect]
     Indication: COLONOSCOPY
     Route: 048
     Dates: start: 20080416, end: 20080417
  2. SIMVASTATIN (SIMVASTATIN) [Concomitant]
  3. GLYBURIDE (GLIBENCLAMIDE) [Concomitant]
  4. LOTREL [Concomitant]
  5. METFORMIN (METFORMIN) [Concomitant]
  6. SINGULAIR (MONTELUKAST SODIUM) [Concomitant]
  7. LEVOTHYROXINE (LEVOTHYROXINE) [Concomitant]
  8. CALCIUM WITH VITAMIN D (CALCIUM, VITAMIN D NOS) [Concomitant]
  9. JANUVIA (SITAGLIPTIN PHOSPHATE) [Concomitant]

REACTIONS (22)
  - Renal failure chronic [None]
  - Nephrolithiasis [None]
  - Nausea [None]
  - Abdominal discomfort [None]
  - Malaise [None]
  - Abdominal pain upper [None]
  - Renal cyst [None]
  - Feeling abnormal [None]
  - Urinary tract infection [None]
  - Fatigue [None]
  - Aphagia [None]
  - Drug intolerance [None]
  - Fatigue [None]
  - Renal failure acute [None]
  - Acute phosphate nephropathy [None]
  - Nephrosclerosis [None]
  - Renal tubular necrosis [None]
  - Laboratory test interference [None]
  - Anaemia [None]
  - Hot flush [None]
  - Hyperparathyroidism primary [None]
  - Decreased appetite [None]
